FAERS Safety Report 20024678 (Version 3)
Quarter: 2021Q4

REPORT INFORMATION
  Report Type: Report from Study
  Country: US (occurrence: US)
  Receive Date: 20211102
  Receipt Date: 20211112
  Transmission Date: 20220303
  Serious: Yes (Hospitalization)
  Sender: FDA-Public Use
  Company Number: US-PFIZER INC-202101419745

PATIENT
  Age: 67 Year
  Sex: Female

DRUGS (6)
  1. AMLODIPINE BESYLATE [Suspect]
     Active Substance: AMLODIPINE BESYLATE
     Dosage: UNK
     Route: 065
  2. LENVIMA [Suspect]
     Active Substance: LENVATINIB
     Indication: Thyroid cancer
     Dosage: 24 MG, 1X/DAY
     Route: 048
     Dates: start: 20210723, end: 20210821
  3. LENVIMA [Suspect]
     Active Substance: LENVATINIB
     Dosage: 20 MG, 1X/DAY
     Route: 048
     Dates: start: 20210823, end: 20210902
  4. LENVIMA [Suspect]
     Active Substance: LENVATINIB
     Dosage: 14 MG, 1X/DAY
     Route: 048
     Dates: start: 20210903
  5. KEYTRUDA [Suspect]
     Active Substance: PEMBROLIZUMAB
     Dosage: UNK
     Route: 065
  6. HYDROCODONE [Concomitant]
     Active Substance: HYDROCODONE
     Dosage: UNK

REACTIONS (2)
  - Cholecystitis [Not Recovered/Not Resolved]
  - Colitis [Recovered/Resolved]

NARRATIVE: CASE EVENT DATE: 20211001
